FAERS Safety Report 15895396 (Version 1)
Quarter: 2019Q1

REPORT INFORMATION
  Report Type: Spontaneous
  Country: US (occurrence: US)
  Receive Date: 20190110
  Receipt Date: 20190110
  Transmission Date: 20190417
  Serious: No
  Sender: FDA-Public Use
  Company Number: None

PATIENT
  Sex: Male

DRUGS (9)
  1. LORATADINE. [Concomitant]
     Active Substance: LORATADINE
  2. METHADONE [Suspect]
     Active Substance: METHADONE HYDROCHLORIDE
  3. TAMSULOSIN [Concomitant]
     Active Substance: TAMSULOSIN
  4. ZALEPLON. [Concomitant]
     Active Substance: ZALEPLON
  5. HARVONI [Suspect]
     Active Substance: LEDIPASVIR\SOFOSBUVIR
     Indication: HEPATITIS C
     Route: 048
     Dates: start: 20170921, end: 20171213
  6. GABAPENTIN. [Concomitant]
     Active Substance: GABAPENTIN
  7. NALOXONE [Concomitant]
     Active Substance: NALOXONE
  8. CLONAZEPAM. [Suspect]
     Active Substance: CLONAZEPAM
  9. DEXTROAMPHETAMINE. [Suspect]
     Active Substance: DEXTROAMPHETAMINE

REACTIONS (1)
  - Alcohol withdrawal syndrome [None]

NARRATIVE: CASE EVENT DATE: 20170924
